FAERS Safety Report 6027930-1 (Version None)
Quarter: 2009Q1

REPORT INFORMATION
  Report Type: 
  Country: None (occurrence: None)
  Receive Date: 20090105
  Receipt Date: 20081229
  Transmission Date: 20090719
  Serious: Yes (Other)
  Sender: FDA-Public Use
  Company Number: PHEH2008US06808

PATIENT
  Sex: Female

DRUGS (2)
  1. VOLTAREN [Suspect]
     Dosage: UNK
  2. GLEEVEC [Suspect]
     Dosage: UNK
     Dates: start: 20030101

REACTIONS (1)
  - CONJUNCTIVAL HAEMORRHAGE [None]
